FAERS Safety Report 7341202-4 (Version None)
Quarter: 2011Q1

REPORT INFORMATION
  Report Type: 
  Country: None (occurrence: None)
  Receive Date: 20110309
  Receipt Date: 20110224
  Transmission Date: 20110831
  Serious: Yes (Other)
  Sender: FDA-Public Use
  Company Number: US-ELI_LILLY_AND_COMPANY-US201102007061

PATIENT
  Sex: Male

DRUGS (3)
  1. ANTIHYPERTENSIVES [Concomitant]
     Indication: BLOOD PRESSURE
     Dosage: 1 D/F, UNK
  2. UNSPECIFIED HERBAL [Concomitant]
     Dosage: 1 D/F, UNK
  3. CIALIS [Suspect]
     Indication: ERECTILE DYSFUNCTION
     Dosage: 1 D/F, UNK

REACTIONS (4)
  - COUNTERFEIT DRUG ADMINISTERED [None]
  - CARDIAC VALVE DISEASE [None]
  - ATRIAL SEPTAL DEFECT [None]
  - INTENTIONAL DRUG MISUSE [None]
